FAERS Safety Report 20120151 (Version 2)
Quarter: 2021Q4

REPORT INFORMATION
  Report Type: Spontaneous
  Country: PK (occurrence: PK)
  Receive Date: 20211126
  Receipt Date: 20211217
  Transmission Date: 20220303
  Serious: Yes (Other)
  Sender: FDA-Public Use
  Company Number: PK-NOVARTISPH-NVSC2021PK268802

PATIENT
  Age: 31 Year
  Sex: Male
  Weight: 75 kg

DRUGS (1)
  1. SECUKINUMAB [Suspect]
     Active Substance: SECUKINUMAB
     Indication: Psoriasis
     Dosage: 300 MG, QMO
     Route: 058
     Dates: start: 20200606, end: 20211119

REACTIONS (4)
  - Tuberculosis gastrointestinal [Not Recovered/Not Resolved]
  - Tuberculosis [Unknown]
  - Weight decreased [Unknown]
  - Abdominal pain [Unknown]

NARRATIVE: CASE EVENT DATE: 20211118
